FAERS Safety Report 15263683 (Version 1)
Quarter: 2018Q3

REPORT INFORMATION
  Report Type: Spontaneous
  Country: ZA (occurrence: ZA)
  Receive Date: 20180810
  Receipt Date: 20180810
  Transmission Date: 20181010
  Serious: Yes (Hospitalization)
  Sender: FDA-Public Use
  Company Number: ZA-LUPIN HEALTHCARE (UK) LIMITED-2018-05531

PATIENT
  Sex: Female

DRUGS (5)
  1. BILOCOR [Suspect]
     Active Substance: BISOPROLOL FUMARATE
     Indication: HYPERTENSION
     Dosage: 5 MG, UNK
     Route: 048
     Dates: start: 201802, end: 201807
  2. NEXMEZOL [Concomitant]
     Active Substance: ESOMEPRAZOLE MAGNESIUM
     Indication: DYSPEPSIA
     Dosage: 40 MG, UNK
     Route: 048
     Dates: start: 201806
  3. SERTRALINE [Suspect]
     Active Substance: SERTRALINE HYDROCHLORIDE
     Indication: MENTAL DISORDER
     Dosage: 50 MG, UNK
     Route: 048
     Dates: start: 201804, end: 201805
  4. ZOLPIHEXAL [Concomitant]
     Active Substance: ZOLPIDEM TARTRATE
     Indication: SLEEP DISORDER
     Dosage: 10 MG, UNK
     Route: 048
     Dates: start: 201805
  5. ADCO?BISOCOR [Concomitant]
     Active Substance: BISOPROLOL FUMARATE
     Indication: HYPERTENSION
     Dosage: 5 MG, UNK
     Route: 048
     Dates: start: 201807

REACTIONS (1)
  - Abdominal pain upper [Unknown]
